FAERS Safety Report 20412167 (Version 1)
Quarter: 2022Q1

REPORT INFORMATION
  Report Type: Spontaneous
  Country: US (occurrence: US)
  Receive Date: 20220201
  Receipt Date: 20220201
  Transmission Date: 20220423
  Serious: Yes (Hospitalization)
  Sender: FDA-Public Use
  Company Number: US-GW PHARMA-202201USGW00319

PATIENT
  Age: 20 Month
  Sex: Female

DRUGS (2)
  1. EPIDIOLEX [Suspect]
     Active Substance: CANNABIDIOL
     Indication: Seizure
     Dosage: UNK
     Route: 048
  2. FINTEPLA [Concomitant]
     Active Substance: FENFLURAMINE
     Indication: Seizure
     Dosage: UNK
     Route: 065

REACTIONS (4)
  - COVID-19 [Unknown]
  - Pyrexia [Unknown]
  - Seizure [Unknown]
  - Seizure [Recovered/Resolved]
